FAERS Safety Report 7595268-7 (Version None)
Quarter: 2011Q3

REPORT INFORMATION
  Report Type: 
  Country: None (occurrence: None)
  Receive Date: 20110707
  Receipt Date: 20110628
  Transmission Date: 20111222
  Serious: Yes (Death, Hospitalization, Other)
  Sender: FDA-Public Use
  Company Number: US-PFIZER INC-2011073915

PATIENT
  Sex: Male

DRUGS (12)
  1. REVATIO [Suspect]
     Indication: COR PULMONALE CHRONIC
  2. LASIX [Concomitant]
  3. CITALOPRAM [Concomitant]
  4. CRESTOR [Concomitant]
  5. FLOLAN [Concomitant]
  6. ZETIA [Concomitant]
  7. REVATIO [Suspect]
     Indication: PULMONARY ARTERIAL HYPERTENSION
     Dosage: 20 MG, 3X/DAY
     Route: 048
     Dates: start: 20100830
  8. ACETYLSALICYLIC ACID [Concomitant]
  9. PLAVIX [Concomitant]
     Dosage: UNK
  10. LIPITOR [Concomitant]
  11. EPOPROSTENOL [Concomitant]
  12. VITAMIN D [Concomitant]

REACTIONS (12)
  - PYREXIA [None]
  - DEHYDRATION [None]
  - THROMBOCYTOPENIA [None]
  - PULMONARY ARTERIAL HYPERTENSION [None]
  - LIVER FUNCTION TEST ABNORMAL [None]
  - RIGHT VENTRICULAR FAILURE [None]
  - SEPTIC SHOCK [None]
  - SEPSIS [None]
  - VIRAL INFECTION [None]
  - RESPIRATORY FAILURE [None]
  - RENAL FAILURE ACUTE [None]
  - PNEUMONIA VIRAL [None]
